FAERS Safety Report 25569896 (Version 3)
Quarter: 2025Q3

REPORT INFORMATION
  Report Type: Spontaneous
  Country: CA (occurrence: CA)
  Receive Date: 20250717
  Receipt Date: 20250915
  Transmission Date: 20251021
  Serious: Yes (Hospitalization)
  Sender: CELLTRION
  Company Number: CA-PFIZER INC-202500140819

PATIENT

DRUGS (5)
  1. INFLECTRA [Suspect]
     Active Substance: INFLIXIMAB-DYYB
     Indication: Colitis ulcerative
     Dates: start: 20250515
  2. INFLECTRA [Suspect]
     Active Substance: INFLIXIMAB-DYYB
     Dates: start: 20250710
  3. ENTOCORT [Concomitant]
     Active Substance: BUDESONIDE
  4. PREDNISONE [Concomitant]
     Active Substance: PREDNISONE
  5. MESALAMINE [Concomitant]
     Active Substance: MESALAMINE

REACTIONS (2)
  - Ligament rupture [Recovering/Resolving]
  - Ligament sprain [Recovering/Resolving]

NARRATIVE: CASE EVENT DATE: 20250629
